FAERS Safety Report 12242976 (Version 1)
Quarter: 2016Q2

REPORT INFORMATION
  Report Type: Report from Study
  Country: PR (occurrence: PR)
  Receive Date: 20160406
  Receipt Date: 20160406
  Transmission Date: 20160815
  Serious: Yes (Other)
  Sender: FDA-Public Use
  Company Number: PR-ABBVIE-16K-131-1582704-00

PATIENT
  Age: 39 Year
  Sex: Female
  Weight: 54.48 kg

DRUGS (2)
  1. HUMIRA [Suspect]
     Active Substance: ADALIMUMAB
     Route: 058
  2. HUMIRA [Suspect]
     Active Substance: ADALIMUMAB
     Indication: RHEUMATOID ARTHRITIS
     Route: 058
     Dates: start: 20110608

REACTIONS (21)
  - Cholelithiasis [Not Recovered/Not Resolved]
  - Insomnia [Not Recovered/Not Resolved]
  - Anxiety [Not Recovered/Not Resolved]
  - Decreased appetite [Not Recovered/Not Resolved]
  - Headache [Recovered/Resolved]
  - Nephrolithiasis [Not Recovered/Not Resolved]
  - Abdominal pain [Unknown]
  - Dry eye [Not Recovered/Not Resolved]
  - Migraine [Unknown]
  - Bile duct stone [Not Recovered/Not Resolved]
  - Blindness [Not Recovered/Not Resolved]
  - Diarrhoea [Not Recovered/Not Resolved]
  - Weight decreased [Not Recovered/Not Resolved]
  - Hepatic steatosis [Not Recovered/Not Resolved]
  - Depression [Not Recovered/Not Resolved]
  - Pain in extremity [Not Recovered/Not Resolved]
  - Hyperacusis [Recovered/Resolved]
  - Dyspepsia [Not Recovered/Not Resolved]
  - Cataract [Not Recovered/Not Resolved]
  - Photophobia [Recovered/Resolved]
  - Renal cyst [Not Recovered/Not Resolved]

NARRATIVE: CASE EVENT DATE: 20160217
